FAERS Safety Report 6971566-2 (Version None)
Quarter: 2010Q3

REPORT INFORMATION
  Report Type: 
  Country: None (occurrence: None)
  Receive Date: 20100908
  Receipt Date: 20100903
  Transmission Date: 20110219
  Serious: Yes (Hospitalization, Other)
  Sender: FDA-Public Use
  Company Number: FR-GILEAD-2010-0031170

PATIENT
  Sex: Male
  Weight: 68 kg

DRUGS (6)
  1. ATRIPLA [Suspect]
     Indication: HIV INFECTION
     Route: 048
     Dates: start: 20061001
  2. NORVIR [Concomitant]
     Indication: ANTIRETROVIRAL THERAPY
     Route: 048
  3. PREZISTA [Concomitant]
     Route: 048
     Dates: start: 20061001
  4. ISENTRESS [Concomitant]
     Route: 048
     Dates: start: 20081001
  5. FIXICAL [Concomitant]
     Route: 048
     Dates: start: 20100101
  6. CYCLOPHOSPHAMIDE [Concomitant]
     Route: 048
     Dates: start: 19960101

REACTIONS (5)
  - FANCONI SYNDROME ACQUIRED [None]
  - HYPOPHOSPHATAEMIA [None]
  - METABOLIC ACIDOSIS [None]
  - MUSCLE SPASMS [None]
  - RENAL FAILURE [None]
